FAERS Safety Report 6781322-6 (Version None)
Quarter: 2010Q2

REPORT INFORMATION
  Report Type: 
  Country: None (occurrence: None)
  Receive Date: 20100621
  Receipt Date: 20100611
  Transmission Date: 20101027
  Serious: Yes (Other)
  Sender: FDA-Public Use
  Company Number: PHHY2009CL46327

PATIENT
  Age: 67 Year
  Sex: Female

DRUGS (2)
  1. EXFORGE [Suspect]
     Indication: HYPERTENSION
     Dosage: 1 TABLET (320/10 MG) PER DAY
     Dates: start: 20081101
  2. LORAZEPAM [Concomitant]

REACTIONS (3)
  - GINGIVAL SWELLING [None]
  - LOWER LIMB FRACTURE [None]
  - OEDEMA PERIPHERAL [None]
